FAERS Safety Report 25893795 (Version 4)
Quarter: 2025Q4

REPORT INFORMATION
  Report Type: Spontaneous
  Country: CA (occurrence: CA)
  Receive Date: 20251008
  Receipt Date: 20251028
  Transmission Date: 20260117
  Serious: Yes (Disabling, Other)
  Sender: ADVANZ PHARMA
  Company Number: US-MLMSERVICE-20250918-PI642864-00095-3

PATIENT

DRUGS (6)
  1. HYDROXYCHLOROQUINE [Suspect]
     Active Substance: HYDROXYCHLOROQUINE
     Indication: Rheumatoid arthritis
     Dosage: 200 MG, QD (FIVE YEAR PERIOD OVER 20 YEARS PRIOR TO PRESENTATION)
     Route: 048
  2. METOPROLOL [Concomitant]
     Active Substance: METOPROLOL
     Indication: Rheumatoid arthritis
     Dosage: UNK
     Route: 065
  3. ENTRESTO [Concomitant]
     Active Substance: SACUBITRIL\VALSARTAN
     Indication: Rheumatoid arthritis
     Dosage: UNK
     Route: 065
  4. ADALIMUMAB [Concomitant]
     Active Substance: ADALIMUMAB
     Indication: Rheumatoid arthritis
     Dosage: UNK
     Route: 065
  5. WARFARIN [Concomitant]
     Active Substance: WARFARIN
     Indication: Atrial fibrillation
     Dosage: UNK
     Route: 065
  6. LATANOPROST [Concomitant]
     Active Substance: LATANOPROST
     Indication: Open angle glaucoma
     Dosage: UNK, QD (HS)
     Route: 065

REACTIONS (11)
  - Choroidal dystrophy [Recovering/Resolving]
  - Pinguecula [Recovering/Resolving]
  - Pupillary reflex impaired [Recovering/Resolving]
  - Visual impairment [Recovering/Resolving]
  - Punctate keratitis [Recovering/Resolving]
  - Blindness [Recovering/Resolving]
  - Toxicity to various agents [Recovering/Resolving]
  - Keratopathy [Recovering/Resolving]
  - Retinal pigment epithelium change [Recovering/Resolving]
  - Macular degeneration [Recovering/Resolving]
  - Maculopathy [Recovering/Resolving]
